FAERS Safety Report 5358185-9 (Version None)
Quarter: 2007Q2

REPORT INFORMATION
  Report Type: 
  Country: None (occurrence: None)
  Receive Date: 20070530
  Receipt Date: 20061214
  Transmission Date: 20071010
  Serious: Yes (Hospitalization, Other)
  Sender: FDA-Public Use
  Company Number: US200605002709

PATIENT
  Age: 40 Year
  Sex: Female
  Weight: 59 kg

DRUGS (4)
  1. ZYPREXA [Suspect]
     Dosage: SEE IMAGE
     Dates: start: 20020101, end: 20040101
  2. ZYPREXA [Suspect]
     Dosage: SEE IMAGE
     Dates: start: 20030101, end: 20040901
  3. QUETIAPINE FUMARATE [Concomitant]
  4. TRIMIPRAMINE MALEATE [Concomitant]

REACTIONS (5)
  - CHOLELITHIASIS [None]
  - DIABETES MELLITUS [None]
  - PANCREATITIS [None]
  - WEIGHT DECREASED [None]
  - WEIGHT INCREASED [None]
